FAERS Safety Report 9742767 (Version 3)
Quarter: 2017Q3

REPORT INFORMATION
  Report Type: Spontaneous
  Country: US (occurrence: US)
  Receive Date: 20131210
  Receipt Date: 20170711
  Transmission Date: 20171128
  Serious: Yes (Other)
  Sender: FDA-Public Use
  Company Number: US-IPSEN BIOPHARMACEUTICALS, INC.-2013-4890

PATIENT
  Age: 55 Year
  Sex: Female

DRUGS (1)
  1. DYSPORT [Suspect]
     Active Substance: ABOBOTULINUMTOXINA
     Indication: SKIN WRINKLING
     Dosage: 50 UNITS
     Route: 065
     Dates: start: 20131030, end: 20131030

REACTIONS (6)
  - Rash [None]
  - Asthenia [None]
  - Head discomfort [None]
  - Nausea [None]
  - Hypothyroidism [Unknown]
  - Facial paralysis [None]

NARRATIVE: CASE EVENT DATE: 2013
